FAERS Safety Report 6284231-4 (Version None)
Quarter: 2009Q3

REPORT INFORMATION
  Report Type: 
  Country: None (occurrence: None)
  Receive Date: 20090727
  Receipt Date: 20090721
  Transmission Date: 20100115
  Serious: Yes (Hospitalization, Other)
  Sender: FDA-Public Use
  Company Number: FR-JNJFOC-20090706899

PATIENT
  Age: 62 Year
  Sex: Male

DRUGS (13)
  1. TAVANIC [Suspect]
     Indication: DRUG USE FOR UNKNOWN INDICATION
     Route: 048
  2. HOLOXAN [Suspect]
     Indication: LYMPHOMA
     Route: 042
  3. UROMITEXAN [Suspect]
     Indication: LYMPHOMA
     Route: 042
  4. UROMITEXAN [Suspect]
     Route: 048
  5. SPIRIVA [Concomitant]
     Route: 055
  6. SERETIDE [Concomitant]
     Route: 055
  7. METFORMIN HCL [Concomitant]
     Route: 065
  8. BACTRIM [Concomitant]
     Route: 048
  9. ACIDE FOLIQUE [Concomitant]
     Route: 048
  10. DOXORUBICIN HCL [Concomitant]
     Indication: LYMPHOMA
     Route: 042
  11. ZOPHREN [Concomitant]
     Indication: LYMPHOMA
     Route: 065
  12. ETOPOPHOS PRESERVATIVE FREE [Concomitant]
     Indication: LYMPHOMA
     Route: 042
  13. ZYLORIC [Concomitant]
     Indication: LYMPHOMA
     Route: 048

REACTIONS (5)
  - ACUTE RESPIRATORY FAILURE [None]
  - CONFUSIONAL STATE [None]
  - CYTOLYTIC HEPATITIS [None]
  - DELIRIUM TREMENS [None]
  - LUNG INFECTION [None]
